FAERS Safety Report 19507833 (Version 1)
Quarter: 2021Q3

REPORT INFORMATION
  Report Type: Spontaneous
  Country: US (occurrence: US)
  Receive Date: 20210708
  Receipt Date: 20210708
  Transmission Date: 20211014
  Serious: Yes (Other)
  Sender: FDA-Public Use
  Company Number: US-SA-2021SA214809

PATIENT
  Age: 65 Year
  Sex: Female

DRUGS (2)
  1. LANTUS SOLOSTAR [Suspect]
     Active Substance: INSULIN GLARGINE
     Indication: DIABETES MELLITUS
     Dosage: 10?12 UNITS
     Route: 065
     Dates: start: 202102
  2. LANTUS SOLOSTAR [Suspect]
     Active Substance: INSULIN GLARGINE
     Dosage: QD (16?20 UNITS DAILY)
     Route: 065

REACTIONS (4)
  - Glycosylated haemoglobin increased [Unknown]
  - Blood insulin decreased [Unknown]
  - Visual impairment [Unknown]
  - Multiple sclerosis [Unknown]
